FAERS Safety Report 16104552 (Version 1)
Quarter: 2019Q1

REPORT INFORMATION
  Report Type: Report from Study
  Country: US (occurrence: US)
  Receive Date: 20190322
  Receipt Date: 20190322
  Transmission Date: 20190418
  Serious: Yes (Other)
  Sender: FDA-Public Use
  Company Number: US-TAKEDA-2019TUS016208

PATIENT
  Age: 24 Year
  Sex: Female
  Weight: 59.09 kg

DRUGS (3)
  1. VORTIOXETINE. [Suspect]
     Active Substance: VORTIOXETINE
     Indication: MAJOR DEPRESSION
     Dosage: 5 MILLIGRAM, QD
     Route: 048
     Dates: start: 20180813
  2. VORTIOXETINE. [Suspect]
     Active Substance: VORTIOXETINE
     Dosage: 10 MILLIGRAM, QD
     Route: 048
     Dates: start: 20181105, end: 20181110
  3. BUPROPION. [Concomitant]
     Active Substance: BUPROPION
     Indication: MAJOR DEPRESSION
     Dosage: UNK
     Route: 065

REACTIONS (1)
  - Narcolepsy [Not Recovered/Not Resolved]

NARRATIVE: CASE EVENT DATE: 201812
